FAERS Safety Report 11699188 (Version 2)
Quarter: 2016Q1

REPORT INFORMATION
  Report Type: Spontaneous
  Country: US (occurrence: US)
  Receive Date: 20151104
  Receipt Date: 20160311
  Transmission Date: 20160525
  Serious: Yes (Hospitalization, Other)
  Sender: FDA-Public Use
  Company Number: US-CELGENEUS-USA-2015107151

PATIENT
  Sex: Male
  Weight: 77.18 kg

DRUGS (10)
  1. THALOMID [Suspect]
     Active Substance: THALIDOMIDE
     Indication: ARTERIOVENOUS MALFORMATION
     Dosage: 100-200MG
     Route: 048
     Dates: start: 200310
  2. THALOMID [Suspect]
     Active Substance: THALIDOMIDE
     Dosage: 50 - 300MG
     Route: 048
     Dates: start: 20150917
  3. THALOMID [Suspect]
     Active Substance: THALIDOMIDE
     Dosage: 100-250MG
     Route: 048
     Dates: start: 200602
  4. THALOMID [Suspect]
     Active Substance: THALIDOMIDE
     Indication: LYMPHANGIOMA
     Route: 048
     Dates: start: 200308
  5. THALOMID [Suspect]
     Active Substance: THALIDOMIDE
     Route: 048
     Dates: start: 201511, end: 20151201
  6. AMBIEN PAK [Concomitant]
     Indication: PRODUCT USED FOR UNKNOWN INDICATION
     Route: 065
  7. ZEMPLAR [Concomitant]
     Active Substance: PARICALCITOL
     Indication: PRODUCT USED FOR UNKNOWN INDICATION
     Route: 065
  8. CELEBREX [Concomitant]
     Active Substance: CELECOXIB
     Indication: PRODUCT USED FOR UNKNOWN INDICATION
     Route: 065
  9. ALBUMIN-ZLB [Concomitant]
     Indication: PRODUCT USED FOR UNKNOWN INDICATION
     Route: 065
  10. TPN ELECTROLYTES [Concomitant]
     Active Substance: CALCIUM CHLORIDE\MAGNESIUM CHLORIDE\POTASSIUM CHLORIDE\SODIUM ACETATE ANHYDROUS\SODIUM CHLORIDE
     Indication: PRODUCT USED FOR UNKNOWN INDICATION
     Route: 065

REACTIONS (1)
  - Sepsis [Recovering/Resolving]
